FAERS Safety Report 24858885 (Version 2)
Quarter: 2025Q1

REPORT INFORMATION
  Report Type: Spontaneous
  Country: US (occurrence: US)
  Receive Date: 20250118
  Receipt Date: 20250123
  Transmission Date: 20250409
  Serious: No
  Sender: ABBVIE
  Company Number: US-ABBVIE-6090304

PATIENT
  Age: 59 Year
  Sex: Male

DRUGS (1)
  1. VYALEV [Suspect]
     Active Substance: FOSCARBIDOPA\FOSLEVODOPA
     Indication: Parkinson^s disease
     Route: 058

REACTIONS (6)
  - Infusion site infection [Recovering/Resolving]
  - Infusion site infection [Not Recovered/Not Resolved]
  - Infusion site pain [Recovering/Resolving]
  - Infusion site induration [Recovering/Resolving]
  - Infusion site erythema [Recovering/Resolving]
  - Infusion site reaction [Not Recovered/Not Resolved]
